FAERS Safety Report 13232999 (Version 1)
Quarter: 2017Q1

REPORT INFORMATION
  Report Type: Spontaneous
  Country: FR (occurrence: FR)
  Receive Date: 20170214
  Receipt Date: 20170214
  Transmission Date: 20170428
  Serious: Yes (Hospitalization, Other)
  Sender: FDA-Public Use
  Company Number: FR-BAXTER-2017BAX005253

PATIENT
  Age: 74 Year
  Sex: Female

DRUGS (17)
  1. ENDOXAN 50 MG, COMPRIM? ENROB? [Suspect]
     Active Substance: CYCLOPHOSPHAMIDE
     Indication: ACQUIRED HAEMOPHILIA
     Route: 048
     Dates: start: 20160926, end: 20161106
  2. DUPHALAC [Concomitant]
     Active Substance: LACTULOSE
     Indication: PRODUCT USED FOR UNKNOWN INDICATION
     Route: 048
  3. RIFINAH [Suspect]
     Active Substance: ISONIAZID\RIFAMPIN
     Indication: TUBERCULOSIS
     Dosage: STRENGTH AND DOSE: 300/150 MG
     Route: 048
     Dates: start: 20161110
  4. MABTHERA [Suspect]
     Active Substance: RITUXIMAB
     Indication: ACQUIRED HAEMOPHILIA
     Dosage: INFUSION, FIRST COURSE
     Route: 042
     Dates: start: 20161019
  5. CALCIPARINE [Suspect]
     Active Substance: HEPARIN CALCIUM
     Indication: PROPHYLAXIS
     Route: 058
     Dates: end: 20161103
  6. PREVNAR 13 [Concomitant]
     Active Substance: PNEUMOCOCCAL 13-VALENT CONJUGATE VACCINE
     Indication: PRODUCT USED FOR UNKNOWN INDICATION
     Dosage: PNEUMOCOCCAL 13 VALENT CONJUGATE VACCINE
     Route: 065
     Dates: start: 20161110, end: 20161110
  7. CORTANCYL [Suspect]
     Active Substance: PREDNISONE
     Indication: ACQUIRED HAEMOPHILIA
     Dosage: PROGRESSIVE DOSE DECREASE
     Route: 065
  8. CORTANCYL [Suspect]
     Active Substance: PREDNISONE
     Route: 065
     Dates: start: 20161114
  9. BACTRIM [Suspect]
     Active Substance: SULFAMETHOXAZOLE\TRIMETHOPRIM
     Indication: ANTIBIOTIC PROPHYLAXIS
     Dosage: DOSE: 400/80 MG
     Route: 048
     Dates: start: 20161019, end: 20161110
  10. CORTANCYL [Suspect]
     Active Substance: PREDNISONE
     Route: 065
     Dates: start: 20161107
  11. LANSOPRAZOLE. [Suspect]
     Active Substance: LANSOPRAZOLE
     Indication: DRUG THERAPY
     Dosage: MORNING AND EVENING
     Route: 048
     Dates: start: 20161108
  12. FOLINORAL [Concomitant]
     Active Substance: LEUCOVORIN CALCIUM
     Indication: PRODUCT USED FOR UNKNOWN INDICATION
     Route: 048
  13. NOVOSEVEN [Concomitant]
     Active Substance: COAGULATION FACTOR VIIA RECOMBINANT HUMAN
     Indication: PRODUCT USED FOR UNKNOWN INDICATION
     Route: 042
  14. MABTHERA [Suspect]
     Active Substance: RITUXIMAB
     Dosage: INFUSION, SECOND COURSE
     Route: 042
     Dates: start: 20161103
  15. ESOMEPRAZOL [Suspect]
     Active Substance: ESOMEPRAZOLE
     Indication: DRUG THERAPY
     Dosage: MORNING AND EVENING
     Route: 042
     Dates: end: 20161107
  16. CALCIUM FOLINATE [Concomitant]
     Active Substance: LEUCOVORIN CALCIUM
     Indication: PRODUCT USED FOR UNKNOWN INDICATION
     Route: 048
  17. CACIT VITAMIN D3 [Concomitant]
     Active Substance: CALCIUM CARBONATE\CHOLECALCIFEROL
     Indication: PRODUCT USED FOR UNKNOWN INDICATION
     Dosage: 1 BAG
     Route: 048

REACTIONS (5)
  - Lymphopenia [Unknown]
  - Inflammation [Unknown]
  - Interstitial lung disease [Unknown]
  - Shock haemorrhagic [Unknown]
  - Condition aggravated [Unknown]

NARRATIVE: CASE EVENT DATE: 20160930
